FAERS Safety Report 14181056 (Version 4)
Quarter: 2018Q2

REPORT INFORMATION
  Report Type: Report from Study
  Country: BR (occurrence: BR)
  Receive Date: 20171111
  Receipt Date: 20180517
  Transmission Date: 20180711
  Serious: Yes (Hospitalization)
  Sender: FDA-Public Use
  Company Number: BR-UCBSA-2017044665

PATIENT
  Age: 5 Year
  Sex: Female
  Weight: 34 kg

DRUGS (8)
  1. CARBAMAZEPINE. [Concomitant]
     Active Substance: CARBAMAZEPINE
     Indication: EPILEPSY
     Dosage: 400 MG, 3X/DAY (TID)
     Route: 048
     Dates: start: 2016
  2. DEPAKENE [Concomitant]
     Active Substance: VALPROIC ACID
     Dosage: 250 MG, 3X/DAY (TID)
     Route: 048
     Dates: start: 20030814
  3. RIVOTRIL [Concomitant]
     Active Substance: CLONAZEPAM
     Dosage: 2 MG, ONCE DAILY (QD)
     Route: 048
     Dates: start: 20030814
  4. LEVETIRACETAM. [Suspect]
     Active Substance: LEVETIRACETAM
     Indication: EPILEPSY
     Dosage: 500 MG, 3X/DAY (TID)
     Route: 048
     Dates: start: 200811
  5. DEPAKENE [Concomitant]
     Active Substance: VALPROIC ACID
     Indication: EPILEPSY
     Dosage: 300 MG, 3X/DAY (TID)
  6. LEVETIRACETAM. [Suspect]
     Active Substance: LEVETIRACETAM
     Dosage: 500 MG, 3X/DAY (TID)
     Route: 048
     Dates: start: 200811
  7. RIVOTRIL [Concomitant]
     Active Substance: CLONAZEPAM
     Indication: PRODUCT USED FOR UNKNOWN INDICATION
     Dosage: 0.25 MG, 3X/DAY (TID)
  8. DEPAKENE [Concomitant]
     Active Substance: VALPROIC ACID
     Dosage: 500 MG, ONCE DAILY (QD)
     Route: 048
     Dates: start: 20030814

REACTIONS (8)
  - Off label use [Unknown]
  - Seizure [Not Recovered/Not Resolved]
  - Thyroid disorder [Recovered/Resolved]
  - Epilepsy [Unknown]
  - Nausea [Recovered/Resolved]
  - Vitamin D deficiency [Recovered/Resolved]
  - Renal disorder [Recovered/Resolved]
  - Liver disorder [Recovered/Resolved]

NARRATIVE: CASE EVENT DATE: 2009
